FAERS Safety Report 4933962-4 (Version None)
Quarter: 2006Q1

REPORT INFORMATION
  Report Type: 
  Country: None (occurrence: None)
  Receive Date: 20060302
  Receipt Date: 20060220
  Transmission Date: 20060701
  Serious: Yes (Other)
  Sender: FDA-Public Use
  Company Number: 200610197BFR

PATIENT
  Age: 74 Year
  Sex: Female

DRUGS (1)
  1. ACARBOSE [Suspect]
     Dosage: ORAL
     Route: 048
     Dates: end: 20060207

REACTIONS (5)
  - AGRANULOCYTOSIS [None]
  - ALANINE AMINOTRANSFERASE INCREASED [None]
  - ASPARTATE AMINOTRANSFERASE INCREASED [None]
  - GAMMA-GLUTAMYLTRANSFERASE INCREASED [None]
  - HAEMOGLOBIN DECREASED [None]
